FAERS Safety Report 8338944-0 (Version None)
Quarter: 2012Q2

REPORT INFORMATION
  Report Type: 
  Country: None (occurrence: None)
  Receive Date: 20120507
  Receipt Date: 20120426
  Transmission Date: 20120825
  Serious: Yes (Hospitalization)
  Sender: FDA-Public Use
  Company Number: DE-BRISTOL-MYERS SQUIBB COMPANY-16509242

PATIENT
  Age: 62 Year
  Sex: Male
  Weight: 82 kg

DRUGS (20)
  1. PEMETREXED DISODIUM [Suspect]
     Indication: NON-SMALL CELL LUNG CANCER
     Dosage: LAST DOSE:23FEB2012(TD:45DYS) EVERY 21 DYS 28MAR12-ONG
     Route: 042
     Dates: start: 20120110
  2. GABAPENTIN [Concomitant]
     Dates: start: 20111213
  3. EMEND [Concomitant]
     Dates: start: 20120110, end: 20120225
  4. BISOPROLOL FUMARATE [Concomitant]
     Dates: start: 20111213
  5. LAFOL [Concomitant]
     Dates: start: 20111213
  6. OXYCODONE HYDROCHLORIDE [Concomitant]
     Dates: start: 20111216
  7. OMEPRAZOLE [Concomitant]
     Dates: start: 20111213
  8. VITAMIN B-12 [Concomitant]
     Dates: start: 20120109, end: 20120301
  9. MOVIPREP [Concomitant]
     Dates: start: 20120109
  10. FUROSEMIDE [Concomitant]
     Dates: start: 20120110, end: 20120223
  11. DIPYRONE TAB [Concomitant]
     Dates: start: 20110501
  12. RAMIPRIL [Concomitant]
     Dates: start: 20120109
  13. ONDANSETRON [Concomitant]
     Dates: start: 20120110, end: 20120228
  14. CISPLATIN [Suspect]
     Indication: NON-SMALL CELL LUNG CANCER
     Dosage: LAST DOSE:23FEB2012(45DYS) 28-MAR12-ONG
     Route: 042
     Dates: start: 20120110
  15. DEXAMETHASONE [Concomitant]
     Dates: start: 20120109, end: 20120228
  16. MANNITOL [Concomitant]
     Dates: start: 20120110, end: 20120223
  17. CLOPIDOGREL BISULFATE [Concomitant]
     Dates: start: 20120109
  18. OPIUM/NALOXONE TAB [Concomitant]
     Dates: start: 20111213
  19. ASPIRIN [Concomitant]
     Dates: start: 20111213
  20. SIMVASTATIN [Concomitant]
     Dates: start: 20111213

REACTIONS (2)
  - CONSTIPATION [None]
  - GENERAL PHYSICAL HEALTH DETERIORATION [None]
